FAERS Safety Report 10109362 (Version 5)
Quarter: 2015Q2

REPORT INFORMATION
  Report Type: Spontaneous
  Country: US (occurrence: None)
  Receive Date: 20140421
  Receipt Date: 20150420
  Transmission Date: 20150821
  Serious: No
  Sender: FDA-Public Use
  Company Number: AEGR000279

PATIENT
  Age: 54 Year
  Sex: Female
  Weight: 96.6 kg

DRUGS (15)
  1. JUXTAPID [Suspect]
     Active Substance: LOMITAPIDE MESYLATE
     Indication: TYPE IIA HYPERLIPIDAEMIA
     Route: 048
     Dates: start: 201401, end: 20140911
  2. METOPROLOL (METOPROLOL TARTRATE) [Concomitant]
     Active Substance: METOPROLOL TARTRATE
  3. PRISTIQ (DESVENLAFAXINE SUCCINATE) [Concomitant]
     Active Substance: DESVENLAFAXINE SUCCINATE
  4. ZIPRASIDONE [Concomitant]
     Active Substance: ZIPRASIDONE
  5. GEODON [Concomitant]
     Active Substance: ZIPRASIDONE HYDROCHLORIDE\ZIPRASIDONE MESYLATE
  6. NEXIUM [Concomitant]
     Active Substance: ESOMEPRAZOLE MAGNESIUM
  7. LIPITOR [Concomitant]
     Active Substance: ATORVASTATIN CALCIUM
  8. GINGER. [Concomitant]
     Active Substance: GINGER
     Route: 048
     Dates: start: 20140919
  9. PLAQUENIL [Suspect]
     Active Substance: HYDROXYCHLOROQUINE SULFATE
     Indication: PRODUCT USED FOR UNKNOWN INDICATION
  10. PROBIOTIC (BIFIDOBACTERIUM INFANTIS, LACTOBACILLUS ACIDOPHILUS) [Concomitant]
  11. SULFASALAZINE. [Concomitant]
     Active Substance: SULFASALAZINE
  12. AVAPRO [Concomitant]
     Active Substance: IRBESARTAN
  13. BUSPAR (BUSPIRONE HYDROCHLORIDE) [Concomitant]
  14. TRAZODONE [Concomitant]
     Active Substance: TRAZODONE HYDROCHLORIDE
  15. LORTAB (HYDROCODONE BITARTRATE, PARACETAMOL, PROMETHAZINE HYDROCHLORIDE) [Concomitant]

REACTIONS (11)
  - Cough [None]
  - Diarrhoea [None]
  - Malaise [None]
  - Decreased appetite [None]
  - Oedema peripheral [None]
  - Nausea [None]
  - Vomiting [None]
  - Dyspnoea [None]
  - Nasopharyngitis [None]
  - Gastroenteritis viral [None]
  - Hyperchlorhydria [None]

NARRATIVE: CASE EVENT DATE: 201402
